FAERS Safety Report 22217323 (Version 5)
Quarter: 2024Q3

REPORT INFORMATION
  Report Type: Spontaneous
  Country: JP (occurrence: JP)
  Receive Date: 20230417
  Receipt Date: 20240710
  Transmission Date: 20241017
  Serious: No
  Sender: ROCHE
  Company Number: JP-CHUGAI-2023013309

PATIENT
  Age: 44 Year
  Sex: Male
  Weight: 96.2 kg

DRUGS (3)
  1. ROZLYTREK [Suspect]
     Active Substance: ENTRECTINIB
     Indication: Neoplasm
     Dosage: 600 MILLIGRAM, QD
     Route: 048
     Dates: start: 20210114
  2. ROZLYTREK [Suspect]
     Active Substance: ENTRECTINIB
     Indication: Salivary gland cancer
     Dosage: 400 MILLIGRAM, QD
     Route: 048
     Dates: start: 202104
  3. ROZLYTREK [Suspect]
     Active Substance: ENTRECTINIB
     Route: 048

REACTIONS (7)
  - Blood creatinine increased [Recovering/Resolving]
  - Taste disorder [Recovering/Resolving]
  - Balance disorder [Recovering/Resolving]
  - Weight increased [Recovering/Resolving]
  - Fatigue [Recovering/Resolving]
  - Dysgeusia [Recovering/Resolving]
  - Dizziness [Recovering/Resolving]
